FAERS Safety Report 9304462 (Version 1)
Quarter: 2013Q2

REPORT INFORMATION
  Report Type: Spontaneous
  Country: CA (occurrence: CA)
  Receive Date: 20130523
  Receipt Date: 20130523
  Transmission Date: 20140414
  Serious: Yes (Hospitalization, Other)
  Sender: FDA-Public Use
  Company Number: CA-009507513-1305CAN013071

PATIENT
  Sex: Female

DRUGS (1)
  1. JANUMET [Suspect]
     Indication: PRODUCT USED FOR UNKNOWN INDICATION
     Dosage: UNK, QW

REACTIONS (2)
  - Hernia [Unknown]
  - Surgery [Unknown]
